FAERS Safety Report 21131096 (Version 1)
Quarter: 2022Q3

REPORT INFORMATION
  Report Type: Other
  Country: SA (occurrence: None)
  Receive Date: 20220726
  Receipt Date: 20220726
  Transmission Date: 20221027
  Serious: Yes (Other)
  Sender: FDA-Public Use
  Company Number: SA-ROCHE-3145393

PATIENT
  Age: 11 Year
  Sex: Female

DRUGS (1)
  1. RITUXIMAB [Suspect]
     Active Substance: RITUXIMAB
     Indication: Nephrotic syndrome
     Dosage: FOR 4 DOSES
     Route: 042

REACTIONS (2)
  - Bronchiectasis [Unknown]
  - Hypogammaglobulinaemia [Unknown]
